FAERS Safety Report 8201212-1 (Version None)
Quarter: 2012Q1

REPORT INFORMATION
  Report Type: 
  Country: None (occurrence: None)
  Receive Date: 20120312
  Receipt Date: 20120305
  Transmission Date: 20120608
  Serious: Yes (Life-Threatening, Hospitalization, Disabling, Other)
  Sender: FDA-Public Use
  Company Number: PHHY2012SA002384

PATIENT
  Sex: Female

DRUGS (4)
  1. AMLODIPINE [Concomitant]
  2. TASIGNA [Suspect]
     Indication: CHRONIC MYELOID LEUKAEMIA
     Dosage: 800 MG, DAILY
     Route: 048
     Dates: start: 20110101, end: 20120101
  3. AMITRIPTYLINE HCL [Concomitant]
  4. CAPTOPRIL [Concomitant]

REACTIONS (8)
  - GANGRENE [None]
  - PERIPHERAL ARTERIAL OCCLUSIVE DISEASE [None]
  - VASCULITIS [None]
  - SKIN DISCOLOURATION [None]
  - PERIPHERAL ISCHAEMIA [None]
  - PARAESTHESIA [None]
  - HYPOAESTHESIA [None]
  - PAIN IN EXTREMITY [None]
